FAERS Safety Report 22601468 (Version 1)
Quarter: 2023Q2

REPORT INFORMATION
  Report Type: Report from Study
  Country: US (occurrence: US)
  Receive Date: 20230614
  Receipt Date: 20230614
  Transmission Date: 20230722
  Serious: Yes (Other)
  Sender: FDA-Public Use
  Company Number: US-BAYER-2023A082378

PATIENT
  Age: 82 Year
  Sex: Female

DRUGS (3)
  1. ASPIRIN [Suspect]
     Active Substance: ASPIRIN
     Dosage: 81 MG
  2. ENOXAPARIN [Suspect]
     Active Substance: ENOXAPARIN
     Dosage: 30 MG, QD
  3. HYDROXYUREA [Suspect]
     Active Substance: HYDROXYUREA

REACTIONS (4)
  - Haemorrhage [None]
  - Labelled drug-drug interaction medication error [None]
  - Anaemia [None]
  - Haemoglobin decreased [None]
